FAERS Safety Report 9646264 (Version 2)
Quarter: 2014Q1

REPORT INFORMATION
  Report Type: Spontaneous
  Country: FR (occurrence: FR)
  Receive Date: 20131025
  Receipt Date: 20140312
  Transmission Date: 20141002
  Serious: Yes (Other)
  Sender: FDA-Public Use
  Company Number: FR-BAUSCH-BL-2013-005556

PATIENT
  Sex: Male
  Weight: 98 kg

DRUGS (9)
  1. YELLOX 0.9 MG/ML EYE DROPS, SOLUTION [Suspect]
     Indication: POSTOPERATIVE CARE
     Route: 047
     Dates: start: 20130305, end: 20130924
  2. YELLOX 0.9 MG/ML EYE DROPS, SOLUTION [Suspect]
     Indication: CATARACT OPERATION
  3. INSULIN [Concomitant]
     Indication: TYPE 2 DIABETES MELLITUS
  4. MYDRIATICUM EYE DROPS SOLUTION [Concomitant]
     Indication: PRODUCT USED FOR UNKNOWN INDICATION
     Route: 047
     Dates: start: 20130718
  5. MYDRIATICUM EYE DROPS SOLUTION [Concomitant]
     Dosage: 1 DROP EVERY 15 MINUTES, 1 HOUR PRIOR TO ANGIOGRAPHY
     Route: 047
     Dates: start: 20131106, end: 20131106
  6. MYDRIATICUM EYE DROPS SOLUTION [Concomitant]
     Route: 047
     Dates: start: 20140123
  7. NEOSYNEPHRINE [Concomitant]
     Indication: PRODUCT USED FOR UNKNOWN INDICATION
     Dosage: 1 DROP EVERY 15 MINUTES, 1 HOUR PRIOR TO ANGIOGRAPHY
     Route: 047
     Dates: start: 20131106, end: 20131106
  8. NEOSYNEPHRINE [Concomitant]
     Route: 047
     Dates: start: 20140123
  9. XYZALL [Concomitant]
     Indication: PRODUCT USED FOR UNKNOWN INDICATION
     Dosage: 1 TABLET 3 DAYS BEFORE ANGIOGRAPHY AND 1 TABLET MORNING OF EXAM
     Route: 065
     Dates: start: 20140123

REACTIONS (7)
  - Vision blurred [Recovered/Resolved]
  - Condition aggravated [Recovered/Resolved]
  - Incorrect drug administration duration [Recovered/Resolved]
  - Cystoid macular oedema [Recovered/Resolved]
  - Visual acuity reduced [Recovered/Resolved]
  - Amblyopia [Recovered/Resolved]
  - Macular hole [Recovered/Resolved]
